FAERS Safety Report 6137410-0 (Version None)
Quarter: 2009Q1

REPORT INFORMATION
  Report Type: 
  Country: None (occurrence: None)
  Receive Date: 20090326
  Receipt Date: 20090312
  Transmission Date: 20090719
  Serious: Yes (Other)
  Sender: FDA-Public Use
  Company Number: A-NJ2008-20568

PATIENT
  Age: 68 Year
  Sex: Male
  Weight: 53.5 kg

DRUGS (2)
  1. TRACLEER [Suspect]
     Indication: PULMONARY ARTERIAL HYPERTENSION
     Dosage: 62.5 MG, BID, ORAL : 125 MG, BID, ORAL
     Route: 048
     Dates: end: 20090309
  2. TRACLEER [Suspect]
     Indication: PULMONARY ARTERIAL HYPERTENSION
     Dosage: 62.5 MG, BID, ORAL : 125 MG, BID, ORAL
     Route: 048
     Dates: start: 20080410

REACTIONS (3)
  - ANAEMIA [None]
  - CONDITION AGGRAVATED [None]
  - FLUID RETENTION [None]
